FAERS Safety Report 7648499-1 (Version None)
Quarter: 2011Q3

REPORT INFORMATION
  Report Type: 
  Country: None (occurrence: None)
  Receive Date: 20110801
  Receipt Date: 20110722
  Transmission Date: 20111222
  Serious: Yes (Other)
  Sender: FDA-Public Use
  Company Number: US-AMGEN-USASP2011037449

PATIENT
  Age: 68 Year
  Sex: Female

DRUGS (1)
  1. ARANESP [Suspect]
     Indication: MYELODYSPLASTIC SYNDROME
     Dosage: UNK
     Dates: end: 20110101

REACTIONS (1)
  - THERAPEUTIC RESPONSE DECREASED [None]
